FAERS Safety Report 13085108 (Version 4)
Quarter: 2017Q2

REPORT INFORMATION
  Report Type: Spontaneous
  Country: US (occurrence: US)
  Receive Date: 20170104
  Receipt Date: 20170411
  Transmission Date: 20170830
  Serious: Yes (Hospitalization, Other)
  Sender: FDA-Public Use
  Company Number: US-BAYER-2017-001107

PATIENT
  Age: 29 Year
  Sex: Female
  Weight: 131.52 kg

DRUGS (1)
  1. MIRENA [Suspect]
     Active Substance: LEVONORGESTREL
     Dosage: 20 MCG/24HR, CONT
     Route: 015
     Dates: start: 20090930, end: 20141209

REACTIONS (7)
  - Depression suicidal [None]
  - Infection [None]
  - Device breakage [None]
  - Embedded device [Unknown]
  - Complication of device removal [None]
  - Abdominal pain lower [Unknown]
  - Ectopic pregnancy with contraceptive device [None]

NARRATIVE: CASE EVENT DATE: 2014
